FAERS Safety Report 15197058 (Version 4)
Quarter: 2019Q2

REPORT INFORMATION
  Report Type: Spontaneous
  Country: US (occurrence: US)
  Receive Date: 20180725
  Receipt Date: 20190627
  Transmission Date: 20190711
  Serious: Yes (Hospitalization, Other)
  Sender: FDA-Public Use
  Company Number: US-ASTRAZENECA-2018SE93174

PATIENT
  Age: 72 Year
  Sex: Male
  Weight: 83 kg

DRUGS (21)
  1. BRIMONIDINE [Concomitant]
     Active Substance: BRIMONIDINE TARTRATE
  2. NEXIUM [Suspect]
     Active Substance: ESOMEPRAZOLE MAGNESIUM
     Indication: GASTROOESOPHAGEAL REFLUX DISEASE
     Route: 048
     Dates: start: 20110524, end: 20160107
  3. TUMS [Concomitant]
     Active Substance: CALCIUM CARBONATE
  4. NEXIUM [Suspect]
     Active Substance: ESOMEPRAZOLE MAGNESIUM
     Indication: GASTROOESOPHAGEAL REFLUX DISEASE
     Route: 048
     Dates: start: 2011, end: 2015
  5. NEXIUM [Suspect]
     Active Substance: ESOMEPRAZOLE MAGNESIUM
     Indication: GASTROOESOPHAGEAL REFLUX DISEASE
     Route: 048
     Dates: start: 201101, end: 201308
  6. NEXIUM [Suspect]
     Active Substance: ESOMEPRAZOLE MAGNESIUM
     Indication: GASTROOESOPHAGEAL REFLUX DISEASE
     Route: 048
     Dates: start: 201308, end: 201512
  7. METOPROLOL. [Concomitant]
     Active Substance: METOPROLOL
  8. AZITHROMYCIN ANHYDROUS. [Concomitant]
     Active Substance: AZITHROMYCIN ANHYDROUS
  9. GLIPIZIDE. [Concomitant]
     Active Substance: GLIPIZIDE
  10. LUMIGAN [Concomitant]
     Active Substance: BIMATOPROST
  11. VITAMIN B12 [Concomitant]
     Active Substance: CYANOCOBALAMIN
  12. LISINOPRIL. [Concomitant]
     Active Substance: LISINOPRIL
  13. METOPROLOL. [Concomitant]
     Active Substance: METOPROLOL
  14. SIMVASTATIN. [Concomitant]
     Active Substance: SIMVASTATIN
  15. TRICOR [Concomitant]
     Active Substance: FENOFIBRATE
  16. AMIODARONE [Concomitant]
     Active Substance: AMIODARONE
  17. RIVAROXABAN [Concomitant]
     Active Substance: RIVAROXABAN
  18. LISINOPRIL. [Concomitant]
     Active Substance: LISINOPRIL
  19. METFORMIN [Concomitant]
     Active Substance: METFORMIN HYDROCHLORIDE
  20. PANTOPRAZOLE [Suspect]
     Active Substance: PANTOPRAZOLE
     Indication: GASTROOESOPHAGEAL REFLUX DISEASE
     Route: 065
     Dates: start: 201601, end: 201612
  21. XARELTO [Concomitant]
     Active Substance: RIVAROXABAN

REACTIONS (4)
  - Nephrogenic anaemia [Unknown]
  - Acute kidney injury [Unknown]
  - Chronic kidney disease [Not Recovered/Not Resolved]
  - Renal failure [Unknown]

NARRATIVE: CASE EVENT DATE: 2016
